FAERS Safety Report 19000983 (Version 1)
Quarter: 2021Q1

REPORT INFORMATION
  Report Type: Spontaneous
  Country: None (occurrence: US)
  Receive Date: 20210311
  Receipt Date: 20210311
  Transmission Date: 20210420
  Serious: No
  Sender: FDA-Public Use
  Company Number: US-PERSON AND COVEY-2107880

PATIENT
  Sex: Female

DRUGS (1)
  1. DAILY FACIAL MOISTURIZER SPF 25 [Suspect]
     Active Substance: AVOBENZONE\HOMOSALATE\OCTINOXATE\OCTOCRYLENE
     Indication: DRY SKIN
     Route: 003
     Dates: start: 20210303

REACTIONS (1)
  - Rash [Unknown]

NARRATIVE: CASE EVENT DATE: 20210303
